FAERS Safety Report 18342413 (Version 1)
Quarter: 2020Q4

REPORT INFORMATION
  Report Type: Spontaneous
  Country: ES (occurrence: ES)
  Receive Date: 20201005
  Receipt Date: 20201005
  Transmission Date: 20210113
  Serious: Yes (Hospitalization)
  Sender: FDA-Public Use
  Company Number: ES-SA-2020SA139500

PATIENT

DRUGS (5)
  1. BETAMETHASONE. [Concomitant]
     Active Substance: BETAMETHASONE
     Indication: HERPES GESTATIONIS
     Dosage: UNK UNK, BID
     Route: 061
     Dates: start: 20200210
  2. CETIRIZINE [Concomitant]
     Active Substance: CETIRIZINE HYDROCHLORIDE
     Indication: HERPES GESTATIONIS
     Dosage: 10 MG, BID
     Route: 048
     Dates: start: 20020210
  3. DUPIXENT [Suspect]
     Active Substance: DUPILUMAB
     Indication: HERPES GESTATIONIS
     Dosage: 600 UNK
     Dates: start: 20200520, end: 20200520
  4. PREDNISONE. [Concomitant]
     Active Substance: PREDNISONE
     Indication: HERPES GESTATIONIS
     Dosage: 30 TO 10 MG
     Route: 048
     Dates: start: 20200210
  5. DEXCHLORPHENIRAMINE [Concomitant]
     Active Substance: DEXCHLORPHENIRAMINE
     Indication: HERPES GESTATIONIS
     Dosage: 2 MG, Q8H
     Route: 048
     Dates: start: 20200210

REACTIONS (3)
  - Preterm premature rupture of membranes [Unknown]
  - Off label use [Unknown]
  - Exposure during pregnancy [Unknown]

NARRATIVE: CASE EVENT DATE: 20200520
